FAERS Safety Report 10265689 (Version 2)
Quarter: 2014Q2

REPORT INFORMATION
  Report Type: Report from Study
  Country: AT (occurrence: AT)
  Receive Date: 20140627
  Receipt Date: 20140627
  Transmission Date: 20141212
  Serious: Yes (Hospitalization)
  Sender: FDA-Public Use
  Company Number: AT-ABBVIE-09P-009-0590856-00

PATIENT
  Age: 62 Year
  Sex: Female
  Weight: 87 kg

DRUGS (4)
  1. HUMIRA [Suspect]
     Indication: CROHN^S DISEASE
     Route: 058
     Dates: start: 20090511, end: 20090715
  2. HUMIRA [Suspect]
     Route: 058
     Dates: start: 20090812
  3. CIPROXIN [Concomitant]
     Indication: ANTIBIOTIC PROPHYLAXIS
     Dates: start: 20090726, end: 20090802
  4. NOVALGIN [Concomitant]
     Indication: ABDOMINAL PAIN
     Dates: start: 20090626, end: 20090802

REACTIONS (2)
  - Ileal stenosis [Recovered/Resolved]
  - Abscess intestinal [Recovered/Resolved]
